FAERS Safety Report 17216158 (Version 3)
Quarter: 2020Q1

REPORT INFORMATION
  Report Type: Spontaneous
  Country: US (occurrence: US)
  Receive Date: 20191230
  Receipt Date: 20200219
  Transmission Date: 20200409
  Serious: Yes (Death, Other)
  Sender: FDA-Public Use
  Company Number: US-PFIZER INC-2019138457

PATIENT
  Age: 69 Year
  Sex: Female
  Weight: 31.75 kg

DRUGS (2)
  1. RAPAMUNE [Suspect]
     Active Substance: SIROLIMUS
     Dosage: UNK
  2. VFEND [Suspect]
     Active Substance: VORICONAZOLE
     Indication: STEM CELL TRANSPLANT
     Dosage: 200 MG, 2X/DAY (TWICE A DAY)
     Route: 048
     Dates: start: 201709

REACTIONS (6)
  - Respiratory failure [Fatal]
  - Pneumonia [Unknown]
  - Graft versus host disease [Unknown]
  - Off label use [Unknown]
  - Obliterative bronchiolitis [Unknown]
  - Product use in unapproved indication [Unknown]

NARRATIVE: CASE EVENT DATE: 201709
